FAERS Safety Report 16025579 (Version 2)
Quarter: 2019Q2

REPORT INFORMATION
  Report Type: Spontaneous
  Country: JP (occurrence: JP)
  Receive Date: 20190302
  Receipt Date: 20190419
  Transmission Date: 20190711
  Serious: Yes (Other)
  Sender: FDA-Public Use
  Company Number: JP-AMGEN-JPNSP2018175049

PATIENT
  Age: 7 Decade
  Sex: Male

DRUGS (8)
  1. VECTIBIX [Suspect]
     Active Substance: PANITUMUMAB
     Indication: COLORECTAL CANCER RECURRENT
     Dosage: 4.8 MILLIGRAM/KILOGRAM, Q2WK
     Route: 041
  2. 5-FU [Concomitant]
     Active Substance: FLUOROURACIL
     Dosage: UNK
     Route: 040
  3. CALCIUM LEVOFOLINATE [Concomitant]
     Active Substance: LEVOLEUCOVORIN CALCIUM
     Dosage: UNK
     Route: 041
  4. VECTIBIX [Suspect]
     Active Substance: PANITUMUMAB
     Dosage: UNK, Q2WK
     Route: 041
  5. CALCIUM LEVOFOLINATE [Concomitant]
     Active Substance: LEVOLEUCOVORIN CALCIUM
     Indication: COLORECTAL CANCER RECURRENT
     Dosage: UNK
     Route: 041
  6. 5-FU [Concomitant]
     Active Substance: FLUOROURACIL
     Indication: COLORECTAL CANCER RECURRENT
     Dosage: UNK
     Route: 040
  7. 5-FU [Concomitant]
     Active Substance: FLUOROURACIL
     Dosage: UNK
     Route: 041
  8. 5-FU [Concomitant]
     Active Substance: FLUOROURACIL
     Dosage: UNK
     Route: 041

REACTIONS (4)
  - Paronychia [Not Recovered/Not Resolved]
  - Acne [Not Recovered/Not Resolved]
  - Colorectal cancer recurrent [Not Recovered/Not Resolved]
  - Disease progression [Not Recovered/Not Resolved]

NARRATIVE: CASE EVENT DATE: 20190115
